FAERS Safety Report 17562183 (Version 3)
Quarter: 2025Q3

REPORT INFORMATION
  Report Type: Report from Study
  Country: EU (occurrence: EU)
  Receive Date: 20200319
  Receipt Date: 20250923
  Transmission Date: 20251020
  Serious: Yes (Hospitalization)
  Sender: ABBVIE
  Company Number: EU-ABBVIE-20K-062-3316616-00

PATIENT
  Age: 32 Year
  Sex: Male

DRUGS (14)
  1. HUMIRA [Suspect]
     Active Substance: ADALIMUMAB
     Indication: Colitis ulcerative
     Route: 058
     Dates: start: 20160425, end: 201701
  2. BISOPROLOL [Concomitant]
     Active Substance: BISOPROLOL
     Indication: Tachycardia paroxysmal
     Route: 048
     Dates: start: 20160116
  3. VALSARTAN [Concomitant]
     Active Substance: VALSARTAN
     Indication: Tachycardia paroxysmal
     Route: 048
     Dates: start: 20160116
  4. ALLOPURINOL [Concomitant]
     Active Substance: ALLOPURINOL
     Indication: Blood uric acid increased
     Route: 048
     Dates: start: 20161220
  5. EPLERENON BETA [Concomitant]
     Indication: Cardiac failure
     Route: 048
     Dates: start: 20161121
  6. PANTOPRAZOLE SODIUM [Concomitant]
     Active Substance: PANTOPRAZOLE SODIUM
     Indication: Prophylaxis
     Route: 048
     Dates: start: 20161220
  7. IVABRADINE [Concomitant]
     Active Substance: IVABRADINE
     Indication: Heart rate increased
     Route: 048
     Dates: start: 20161104, end: 20170515
  8. IVABRADINE [Concomitant]
     Active Substance: IVABRADINE
     Indication: Heart rate increased
     Route: 048
     Dates: start: 20170516
  9. INFLIXIMAB [Concomitant]
     Active Substance: INFLIXIMAB
     Indication: Colitis ulcerative
     Route: 042
     Dates: start: 20170908, end: 20181001
  10. INFLIXIMAB [Concomitant]
     Active Substance: INFLIXIMAB
     Indication: Colitis ulcerative
     Route: 042
     Dates: start: 20181119
  11. METFORMIN [Concomitant]
     Active Substance: METFORMIN HYDROCHLORIDE
     Indication: Diabetes mellitus
     Route: 048
     Dates: start: 201810, end: 20190412
  12. METFORMIN [Concomitant]
     Active Substance: METFORMIN HYDROCHLORIDE
     Indication: Diabetes mellitus
     Route: 048
     Dates: start: 20190413
  13. INSULIN GLARGINE [Concomitant]
     Active Substance: INSULIN GLARGINE
     Indication: Diabetes mellitus
     Route: 058
     Dates: start: 201909
  14. INSULIN LISPRO [Concomitant]
     Active Substance: INSULIN LISPRO
     Indication: Diabetes mellitus
     Route: 058
     Dates: start: 201909

REACTIONS (1)
  - Metabolic dysfunction-associated liver disease [Not Recovered/Not Resolved]

NARRATIVE: CASE EVENT DATE: 20180323
